FAERS Safety Report 10347380 (Version 1)
Quarter: 2014Q3

REPORT INFORMATION
  Report Type: Report from Study
  Country: JP (occurrence: JP)
  Receive Date: 20140729
  Receipt Date: 20140729
  Transmission Date: 20150326
  Serious: Yes (Hospitalization)
  Sender: FDA-Public Use
  Company Number: PHHY2014JP092338

PATIENT
  Age: 80 Year
  Sex: Male

DRUGS (7)
  1. AITANT [Concomitant]
     Dosage: UNK UKN, UNK
  2. MAGLAX [Concomitant]
     Active Substance: MAGNESIUM OXIDE
     Dosage: UNK UKN, UNK
  3. RIVASTIGMIN [Suspect]
     Active Substance: RIVASTIGMINE
     Indication: DEMENTIA ALZHEIMER^S TYPE
     Dosage: 1.9 MG/24 HOURS (4.5 MG DAILY)
     Route: 062
     Dates: start: 20130214, end: 20130228
  4. FERRUM                             /01249901/ [Concomitant]
     Dosage: UNK UKN, UNK
  5. PRAZAXA [Concomitant]
     Active Substance: DABIGATRAN ETEXILATE MESYLATE
     Dosage: UNK UKN, UNK
  6. DEPAKENE [Concomitant]
     Active Substance: VALPROIC ACID
     Dosage: UNK UKN, UNK
  7. FAMOSTAGINE [Concomitant]
     Active Substance: FAMOTIDINE
     Dosage: UNK UKN, UNK

REACTIONS (1)
  - Intestinal obstruction [Recovered/Resolved]

NARRATIVE: CASE EVENT DATE: 20130228
